FAERS Safety Report 19660528 (Version 2)
Quarter: 2021Q3

REPORT INFORMATION
  Report Type: Report from Study
  Country: US (occurrence: US)
  Receive Date: 20210805
  Receipt Date: 20210930
  Transmission Date: 20211014
  Serious: Yes (Hospitalization, Other)
  Sender: FDA-Public Use
  Company Number: US-SA-2020SA286305

PATIENT
  Age: 49 Year
  Sex: Male

DRUGS (2)
  1. AGALSIDASE BETA [Suspect]
     Active Substance: AGALSIDASE BETA
     Indication: FABRY^S DISEASE
     Dosage: 65 MG, QOW
     Route: 042
     Dates: start: 20171017
  2. AGALSIDASE BETA [Suspect]
     Active Substance: AGALSIDASE BETA
     Dosage: 65 MG, QOW
     Route: 042
     Dates: start: 20180717

REACTIONS (9)
  - Fall [Recovering/Resolving]
  - Spinal operation [Unknown]
  - Soliloquy [Recovering/Resolving]
  - SARS-CoV-2 test positive [Recovered/Resolved]
  - Sepsis [Recovering/Resolving]
  - Pneumonia [Recovering/Resolving]
  - Pancreatitis [Not Recovered/Not Resolved]
  - COVID-19 [Recovered/Resolved]
  - Product dose omission issue [Unknown]

NARRATIVE: CASE EVENT DATE: 202108
